FAERS Safety Report 17101392 (Version 1)
Quarter: 2019Q4

REPORT INFORMATION
  Report Type: Spontaneous
  Country: PK (occurrence: PK)
  Receive Date: 20191202
  Receipt Date: 20191202
  Transmission Date: 20200122
  Serious: Yes (Other)
  Sender: FDA-Public Use
  Company Number: PK-NOVOPROD-693813

PATIENT
  Age: 38 Year
  Sex: Female
  Weight: 92 kg

DRUGS (3)
  1. NOVOMIX 50 FLEXPEN [Suspect]
     Active Substance: INSULIN ASPART
     Dosage: 80 IU, QD (40 AND 40 UNITS PER DAY)
     Route: 058
  2. SITAGLU [Concomitant]
     Indication: TYPE 2 DIABETES MELLITUS
     Dosage: TWICE A DAY
     Route: 048
     Dates: start: 20190801
  3. NOVOMIX 50 FLEXPEN [Suspect]
     Active Substance: INSULIN ASPART
     Indication: TYPE 2 DIABETES MELLITUS
     Dosage: 65 IU, QD (35 UNITSAND 30 UNITS PER DAY)
     Route: 058
     Dates: start: 20190801

REACTIONS (2)
  - Blood glucose increased [Not Recovered/Not Resolved]
  - Cholelithiasis [Not Recovered/Not Resolved]

NARRATIVE: CASE EVENT DATE: 20190901
